FAERS Safety Report 9805454 (Version 2)
Quarter: 2014Q1

REPORT INFORMATION
  Report Type: Spontaneous
  Country: US (occurrence: None)
  Receive Date: 20140107
  Receipt Date: 20140129
  Transmission Date: 20141002
  Serious: Yes (Hospitalization)
  Sender: FDA-Public Use
  Company Number: UCM201312-000104

PATIENT
  Age: 27 Year
  Sex: Female

DRUGS (18)
  1. TOPIRAMATE [Suspect]
  2. DIVALPROEX SODIUM [Suspect]
  3. PHENYTOIN [Suspect]
     Dosage: 750 MG LOADING DOSE FOLLOWED BY 100 MG EVERY 8 HRS
     Route: 042
  4. PENTOBARBITAL [Suspect]
  5. PHENOBARBITAL [Suspect]
  6. PROPOFOL [Suspect]
     Indication: CONVULSION
  7. LORAZEPAM [Suspect]
     Indication: CONVULSION
  8. LEVETIRACETAM [Suspect]
  9. LACOSAMIDE [Suspect]
  10. NOREPINEPHRINE [Suspect]
  11. MIDAZOLAM [Suspect]
  12. KETAMINE [Suspect]
  13. VANCOMYCIN (VANCOMYCIN) (VANCOMYCIN) [Concomitant]
  14. CEFTRIAXONE (CEFTRIAXONE) (CEFTRIAXONE) [Concomitant]
  15. ACYCLOVIR (ACYCLOVIR) (ACYCLOVIR) [Concomitant]
  16. AMPICILLIN (AMPICILLIN) (AMPICILLIN) [Concomitant]
  17. CEFEPIME (CEFEPIME) (CEFEPIME) [Concomitant]
  18. METHYLPREDNISOLONE (METHYLPREDNISOLONE) (METHYLPREDNISONE) [Concomitant]

REACTIONS (15)
  - Drug reaction with eosinophilia and systemic symptoms [None]
  - Ileus [None]
  - Drug-induced liver injury [None]
  - Encephalitis autoimmune [None]
  - Drug level below therapeutic [None]
  - Inhibitory drug interaction [None]
  - Convulsion [None]
  - Status epilepticus [None]
  - Hypotension [None]
  - Leukocytosis [None]
  - Transaminases increased [None]
  - Stenotrophomonas infection [None]
  - Pneumonia [None]
  - Diabetes insipidus [None]
  - Hypothermia [None]
